FAERS Safety Report 6284180-1 (Version None)
Quarter: 2009Q3

REPORT INFORMATION
  Report Type: 
  Country: None (occurrence: None)
  Receive Date: 20090727
  Receipt Date: 20090717
  Transmission Date: 20100115
  Serious: No
  Sender: FDA-Public Use
  Company Number: US-JNJFOC-20090706353

PATIENT
  Sex: Male
  Weight: 72.58 kg

DRUGS (4)
  1. FENTANYL TRANSDERMAL SYSTEM [Suspect]
     Indication: BACK PAIN
     Route: 062
  2. DURAGESIC-100 [Suspect]
     Indication: BACK PAIN
     Route: 062
  3. FENTANYL TRANSDERMAL SYSTEM [Suspect]
     Indication: BACK PAIN
     Route: 062
  4. HYDROCODONE [Concomitant]
     Indication: BREAKTHROUGH PAIN
     Route: 048

REACTIONS (3)
  - DEVICE LEAKAGE [None]
  - PRURITUS [None]
  - WRONG TECHNIQUE IN DRUG USAGE PROCESS [None]
